FAERS Safety Report 17962746 (Version 1)
Quarter: 2020Q2

REPORT INFORMATION
  Report Type: Report from Study
  Country: None (occurrence: US)
  Receive Date: 20200630
  Receipt Date: 20200630
  Transmission Date: 20200714
  Serious: Yes (Hospitalization)
  Sender: FDA-Public Use
  Company Number: US-BIOVITRUM-2020US0291

PATIENT
  Sex: Male

DRUGS (1)
  1. ANAKINRA [Suspect]
     Active Substance: ANAKINRA
     Indication: HIDRADENITIS
     Route: 058
     Dates: start: 20190518

REACTIONS (5)
  - Abscess [Unknown]
  - Drug hypersensitivity [Unknown]
  - Wound [Unknown]
  - Impaired healing [Unknown]
  - Off label use [Unknown]
